FAERS Safety Report 10185047 (Version 3)
Quarter: 2014Q3

REPORT INFORMATION
  Report Type: Report from Study
  Country: CA (occurrence: CA)
  Receive Date: 20140521
  Receipt Date: 20140916
  Transmission Date: 20150326
  Serious: Yes (Hospitalization)
  Sender: FDA-Public Use
  Company Number: PHHO2012CA013179

PATIENT
  Age: 64 Year
  Sex: Male
  Weight: 73 kg

DRUGS (28)
  1. SANDOSTATIN LAR DEPOT [Suspect]
     Active Substance: OCTREOTIDE ACETATE
     Dosage: 40 MG, UNK  (CORE PHASE)
     Dates: start: 20090303, end: 20090525
  2. LIPITOR [Concomitant]
     Active Substance: ATORVASTATIN CALCIUM
     Indication: HYPERCHOLESTEROLAEMIA
     Dosage: 10 MG, QD
     Route: 048
     Dates: start: 200711, end: 20100302
  3. HEMCORT [Concomitant]
     Indication: HAEMORRHOIDS
     Dosage: 0.5 %, PRN
     Route: 054
     Dates: start: 2006
  4. MAGNESIUM [Concomitant]
     Active Substance: MAGNESIUM
     Indication: PROPHYLAXIS
     Dosage: 500 MG, QD
     Route: 048
     Dates: start: 20100303, end: 20100427
  5. MOXIFLOXACIN [Concomitant]
     Active Substance: MOXIFLOXACIN
     Indication: RESPIRATORY TRACT INFECTION
     Dosage: 400 MG, QD
     Route: 048
     Dates: start: 20100521, end: 20100528
  6. LANOXIN [Concomitant]
     Active Substance: DIGOXIN
     Indication: ARRHYTHMIA
     Dosage: 0.625 UG, QD
     Route: 048
     Dates: start: 200711
  7. TYLENOL [Concomitant]
     Active Substance: ACETAMINOPHEN
     Indication: PAIN
     Dosage: 1000 MG, PRN
     Route: 048
     Dates: start: 2007
  8. GLYBURIDE. [Concomitant]
     Active Substance: GLYBURIDE
     Dosage: 15 MG, QD
     Route: 048
     Dates: start: 20100209
  9. NEXIUM [Concomitant]
     Active Substance: ESOMEPRAZOLE MAGNESIUM
     Indication: GASTROOESOPHAGEAL REFLUX DISEASE
     Dosage: 40 MG, QD
     Route: 048
     Dates: start: 20100615
  10. SOM230 [Suspect]
     Active Substance: PASIREOTIDE
     Dosage: 40 MG, UNK (EXTENSION BLINDED PHASE)
     Route: 030
     Dates: start: 20091208, end: 20100525
  11. TYLENOL [Concomitant]
     Active Substance: ACETAMINOPHEN
     Indication: HEADACHE
  12. OXAZEPAM. [Concomitant]
     Active Substance: OXAZEPAM
     Indication: INSOMNIA
     Dosage: 30 MG, QD
     Route: 048
     Dates: start: 200908, end: 20100205
  13. AMITRIPTYLINE [Concomitant]
     Active Substance: AMITRIPTYLINE
     Indication: INSOMNIA
     Dosage: 12.5 MG, QD
     Route: 048
     Dates: start: 20100206
  14. SOM230 [Suspect]
     Active Substance: PASIREOTIDE
     Dosage: 60 MG, UNK (EXTENSION BLINDED PHASE)
     Route: 030
     Dates: start: 20100625
  15. LANTUS [Concomitant]
     Active Substance: INSULIN GLARGINE
     Indication: DIABETES MELLITUS
     Dosage: 10 QD
     Route: 058
     Dates: start: 200808, end: 20111122
  16. BISOPROLOL [Concomitant]
     Active Substance: BISOPROLOL
     Indication: HYPERTENSION
     Dosage: 5 MG, QD
     Route: 048
     Dates: start: 200809
  17. NOVO-SEMIDE [Concomitant]
     Indication: HYPERTENSION
     Dosage: 40 MG, QD
     Route: 048
     Dates: start: 200809
  18. LANTUS [Concomitant]
     Active Substance: INSULIN GLARGINE
     Dosage: 5 QD
     Route: 058
     Dates: start: 20111123
  19. METFORMIN [Concomitant]
     Active Substance: METFORMIN HYDROCHLORIDE
     Indication: DIABETES MELLITUS
     Dosage: 500 MG, TID
     Route: 048
     Dates: start: 20090527
  20. GLYBURIDE. [Concomitant]
     Active Substance: GLYBURIDE
     Indication: DIABETES MELLITUS
     Dosage: 10 MG, QD
     Route: 048
     Dates: start: 20100202, end: 20100208
  21. SOM230 [Suspect]
     Active Substance: PASIREOTIDE
     Indication: ACROMEGALY
     Dosage: EXTENSION OPEN LABEL PHASE
  22. MAVIK [Concomitant]
     Active Substance: TRANDOLAPRIL
     Indication: HYPERTENSION
     Dosage: 4 MG, QD
     Route: 048
     Dates: start: 200711
  23. SPIRIVA [Concomitant]
     Active Substance: TIOTROPIUM BROMIDE MONOHYDRATE
     Indication: DYSPNOEA
     Dosage: 18 UG, QD
     Route: 055
     Dates: start: 20090329
  24. PRAVACHOL [Concomitant]
     Active Substance: PRAVASTATIN SODIUM
     Indication: HYPERCHOLESTEROLAEMIA
     Dosage: 40 MG, QD
     Route: 048
     Dates: start: 20100303
  25. JANUVIA [Concomitant]
     Active Substance: SITAGLIPTIN PHOSPHATE
     Indication: DIABETES MELLITUS
     Dosage: 100 MG, QD
     Route: 048
     Dates: start: 20100330
  26. SANDOSTATIN LAR DEPOT [Suspect]
     Active Substance: OCTREOTIDE ACETATE
     Indication: ACROMEGALY
     Dosage: 60 MG, UNK (CORE PHASE)
     Route: 030
     Dates: start: 20081208, end: 20090203
  27. SOM230 [Suspect]
     Active Substance: PASIREOTIDE
     Indication: ACROMEGALY
     Dosage: 60 MG, UNK (EXTENSION BLINDED PHASE)
     Route: 030
     Dates: start: 20091109
  28. CALCIUM [Concomitant]
     Active Substance: CALCIUM
     Indication: PROPHYLAXIS
     Dosage: 500 MG, QD
     Route: 048
     Dates: start: 20100303

REACTIONS (3)
  - Vomiting [Recovered/Resolved]
  - Oesophageal obstruction [Recovered/Resolved]
  - Weight decreased [Recovered/Resolved]

NARRATIVE: CASE EVENT DATE: 20120718
